FAERS Safety Report 6637400-5 (Version None)
Quarter: 2010Q1

REPORT INFORMATION
  Report Type: 
  Country: None (occurrence: None)
  Receive Date: 20100316
  Receipt Date: 20100315
  Transmission Date: 20100710
  Serious: Yes (Other)
  Sender: FDA-Public Use
  Company Number: US-MERCK-0709USA02176

PATIENT
  Age: 57 Year
  Sex: Female
  Weight: 97 kg

DRUGS (1)
  1. FOSAMAX [Suspect]
     Indication: OSTEOPOROSIS
     Route: 048
     Dates: start: 20030526, end: 20031001

REACTIONS (57)
  - ACANTHOSIS [None]
  - ALCOHOL USE [None]
  - ALVEOLAR OSTEITIS [None]
  - ANXIETY [None]
  - ARTHRALGIA [None]
  - ARTHROPATHY [None]
  - BACK PAIN [None]
  - BLADDER DISORDER [None]
  - BLOOD DISORDER [None]
  - CONGENITAL DYSKERATOSIS [None]
  - CYST [None]
  - DENTAL CARIES [None]
  - DEPRESSION [None]
  - DIVERTICULUM INTESTINAL [None]
  - DYSPHONIA [None]
  - EXOSTOSIS [None]
  - GAIT DISTURBANCE [None]
  - GASTROOESOPHAGEAL REFLUX DISEASE [None]
  - GINGIVAL BLEEDING [None]
  - GINGIVAL DISORDER [None]
  - GINGIVAL INFECTION [None]
  - HERPES VIRUS INFECTION [None]
  - HYPERKERATOSIS [None]
  - IMPAIRED HEALING [None]
  - INCREASED TENDENCY TO BRUISE [None]
  - INJURY [None]
  - JAW DISORDER [None]
  - JOINT RANGE OF MOTION DECREASED [None]
  - LIP AND/OR ORAL CAVITY CANCER [None]
  - LOOSE TOOTH [None]
  - NEUROPATHY PERIPHERAL [None]
  - OEDEMA MOUTH [None]
  - ORAL DISCOMFORT [None]
  - ORAL DISORDER [None]
  - ORAL INFECTION [None]
  - ORAL PAIN [None]
  - OSTEOARTHRITIS [None]
  - OSTEORADIONECROSIS [None]
  - PAPILLOMA [None]
  - PARAESTHESIA [None]
  - PARAESTHESIA ORAL [None]
  - PARAKERATOSIS [None]
  - PERIODONTAL DISEASE [None]
  - POSTNASAL DRIP [None]
  - REPRODUCTIVE TRACT DISORDER [None]
  - RHEUMATOID ARTHRITIS [None]
  - ROTATOR CUFF SYNDROME [None]
  - SENSATION OF HEAVINESS [None]
  - STOMATITIS [None]
  - TOBACCO USER [None]
  - TOOTH DISORDER [None]
  - TOOTH INFECTION [None]
  - TOOTH LOSS [None]
  - TRISMUS [None]
  - UPPER RESPIRATORY TRACT INFECTION [None]
  - VOCAL CORD POLYP [None]
  - WHEEZING [None]
